FAERS Safety Report 5714895-2 (Version None)
Quarter: 2008Q2

REPORT INFORMATION
  Report Type: 
  Country: None (occurrence: None)
  Receive Date: 20080423
  Receipt Date: 20070924
  Transmission Date: 20081010
  Serious: No
  Sender: FDA-Public Use
  Company Number: US-BAYER-US-2007-035263

PATIENT
  Age: 42 Year
  Sex: Female
  Weight: 54 kg

DRUGS (4)
  1. LEUKINE [Suspect]
     Indication: BREAST CANCER
     Route: 058
     Dates: start: 20070711, end: 20070912
  2. EMEND [Concomitant]
     Route: 048
  3. DECADRON /CAN/ [Concomitant]
     Dosage: UNIT DOSE: 4 MG
  4. TAXOL [Concomitant]
     Route: 042

REACTIONS (2)
  - BACK PAIN [None]
  - NECK PAIN [None]
